FAERS Safety Report 9063458 (Version 1)
Quarter: 2013Q1

REPORT INFORMATION
  Report Type: Report from Study
  Country: US (occurrence: US)
  Receive Date: 20130131
  Receipt Date: 20130131
  Transmission Date: 20140127
  Serious: No
  Sender: FDA-Public Use
  Company Number: US-ABBOTT-12P-163-1010235-00

PATIENT
  Age: 41 Year
  Sex: Male

DRUGS (15)
  1. HUMIRA [Suspect]
     Indication: COLITIS ULCERATIVE
     Route: 058
     Dates: start: 20121012
  2. LIALDA [Concomitant]
     Indication: PROPHYLAXIS
  3. LIALDA [Concomitant]
     Indication: NEOPLASM MALIGNANT
     Dosage: 1.2 GM, 2 PILLS DAILY (DECREASED)
  4. GABAPENTIN [Concomitant]
     Indication: PAIN
     Dosage: 1800 MG, AT BEDTIME
  5. TRAMADOL [Concomitant]
     Indication: PAIN
     Route: 048
  6. LORAZEPAM [Concomitant]
     Indication: INSOMNIA
     Dosage: 1 MG, AT BEDTIME
  7. LORAZEPAM [Concomitant]
     Indication: ANXIETY
  8. BUSPIRONE [Concomitant]
     Indication: ANXIETY
     Dosage: IN AM
  9. CELEBREX [Concomitant]
     Indication: PAIN
     Dosage: 200 MG ONE DAILY, AS REQUIRED (DECREASED)
     Route: 048
  10. LISINOPRIL [Concomitant]
     Indication: BLOOD PRESSURE
     Route: 048
  11. WELLBUTRIN [Concomitant]
     Indication: DEPRESSION
     Dosage: 300 MG DAILY
     Route: 048
  12. UNKNOWN TOPICAL ANTIBIOTIC OINTMENT [Concomitant]
     Indication: PRODUCT USED FOR UNKNOWN INDICATION
     Route: 061
  13. TRIAMCINOLONE [Concomitant]
     Indication: PRODUCT USED FOR UNKNOWN INDICATION
     Route: 061
  14. DESPIRAMINE [Concomitant]
     Indication: PRODUCT USED FOR UNKNOWN INDICATION
  15. TYLENOL [Concomitant]
     Indication: PRODUCT USED FOR UNKNOWN INDICATION
     Dosage: DAILY

REACTIONS (1)
  - Acne [Recovered/Resolved]
